FAERS Safety Report 9456483 (Version 1)
Quarter: 2013Q3

REPORT INFORMATION
  Report Type: Spontaneous
  Country: FR (occurrence: None)
  Receive Date: 20130809
  Receipt Date: 20130809
  Transmission Date: 20140515
  Serious: Yes (Other)
  Sender: FDA-Public Use
  Company Number: FR-ALSI-201300204

PATIENT
  Sex: Male

DRUGS (2)
  1. OXYGEN [Suspect]
     Indication: VOCAL CORDECTOMY
     Dosage: RESPIRATORY
     Dates: start: 201105, end: 201105
  2. NITROUS OXIDE [Suspect]
     Indication: VOCAL CORDECTOMY
     Dosage: RESPIRATORY
     Dates: start: 201105, end: 201105

REACTIONS (2)
  - Acute respiratory distress syndrome [None]
  - Accident [None]
